FAERS Safety Report 6195527-9 (Version None)
Quarter: 2009Q2

REPORT INFORMATION
  Report Type: 
  Country: None (occurrence: None)
  Receive Date: 20090519
  Receipt Date: 20090511
  Transmission Date: 20091009
  Serious: Yes (Other)
  Sender: FDA-Public Use
  Company Number: PHEH2009US04660

PATIENT
  Sex: Female

DRUGS (4)
  1. RECLAST [Suspect]
     Dosage: UNK
     Dates: start: 20090403
  2. VALIUM [Concomitant]
  3. PERCOCET [Concomitant]
  4. MUSCLE RELAXANTS [Concomitant]

REACTIONS (3)
  - MUSCULAR WEAKNESS [None]
  - SYSTEMIC LUPUS ERYTHEMATOSUS [None]
  - WALKING AID USER [None]
